FAERS Safety Report 8890279 (Version 1)
Quarter: 2012Q4

REPORT INFORMATION
  Report Type: 
  Country: SE (occurrence: SE)
  Receive Date: 20121107
  Receipt Date: 20121107
  Transmission Date: 20130627
  Serious: Yes (Hospitalization)
  Sender: FDA-Public Use
  Company Number: SE-PFIZER INC-2012273331

PATIENT
  Age: 89 Year
  Sex: Male

DRUGS (3)
  1. XALATAN [Suspect]
     Dosage: Unk
  2. AZOPT [Concomitant]
     Dosage: UNK
  3. BLOCADREN [Concomitant]
     Dosage: UNK

REACTIONS (2)
  - Loss of consciousness [Unknown]
  - Convulsion [Unknown]
